FAERS Safety Report 9344864 (Version 3)
Quarter: 2014Q1

REPORT INFORMATION
  Report Type: Report from Study
  Country: JP (occurrence: JP)
  Receive Date: 20130612
  Receipt Date: 20140120
  Transmission Date: 20141002
  Serious: Yes (Life-Threatening)
  Sender: FDA-Public Use
  Company Number: JP-GLAXOSMITHKLINE-B0897989A

PATIENT
  Age: 69 Year
  Sex: Female
  Weight: 45 kg

DRUGS (7)
  1. REVOLADE [Suspect]
     Indication: EVANS SYNDROME
     Route: 048
     Dates: start: 20130306, end: 20130410
  2. REVOLADE [Suspect]
     Indication: EVANS SYNDROME
     Route: 048
     Dates: start: 20130411, end: 20130417
  3. REVOLADE [Suspect]
     Indication: EVANS SYNDROME
     Route: 048
     Dates: start: 20130418, end: 20130525
  4. PREDNISOLONE [Concomitant]
     Indication: IMMUNE THROMBOCYTOPENIC PURPURA
     Route: 048
     Dates: end: 20130525
  5. FAMOTIDINE D [Concomitant]
     Route: 048
     Dates: end: 20130525
  6. BACTRAMIN [Concomitant]
     Route: 048
     Dates: end: 20130525
  7. BONALON [Concomitant]
     Route: 048
     Dates: end: 20130525

REACTIONS (1)
  - Renal failure [Recovering/Resolving]
